FAERS Safety Report 21706168 (Version 3)
Quarter: 2023Q2

REPORT INFORMATION
  Report Type: Spontaneous
  Country: US (occurrence: US)
  Receive Date: 20221209
  Receipt Date: 20230522
  Transmission Date: 20230721
  Serious: No
  Sender: FDA-Public Use
  Company Number: US-PFIZER INC-202201359959

PATIENT
  Age: 71 Year
  Sex: Female
  Weight: 66.667 kg

DRUGS (4)
  1. IBRANCE [Suspect]
     Active Substance: PALBOCICLIB
     Indication: Breast cancer female
     Dosage: TAKE ONE TABLET ONCE DAILY WITH FOOD 21 DAYS ON 7 DAYS OFF
     Route: 048
     Dates: start: 201507
  2. FASLODEX [Concomitant]
     Active Substance: FULVESTRANT
     Dosage: UNK
     Dates: start: 20191001
  3. FEMARA [Concomitant]
     Active Substance: LETROZOLE
     Dosage: UNK
     Dates: start: 201507, end: 201812
  4. XGEVA [Concomitant]
     Active Substance: DENOSUMAB
     Dosage: UNK
     Dates: start: 201610, end: 2017

REACTIONS (3)
  - Illness [Unknown]
  - Suspected COVID-19 [Unknown]
  - Memory impairment [Unknown]
